FAERS Safety Report 5981835-0 (Version None)
Quarter: 2008Q4

REPORT INFORMATION
  Report Type: 
  Country: None (occurrence: None)
  Receive Date: 20081202
  Receipt Date: 20081117
  Transmission Date: 20090506
  Serious: No
  Sender: FDA-Public Use
  Company Number: 2008-03272

PATIENT
  Age: 74 Year
  Sex: Female
  Weight: 75.7 kg

DRUGS (21)
  1. VELCADE [Suspect]
     Indication: MULTIPLE MYELOMA
     Dosage: 1 MG/M2, INTRAVENOUS
     Route: 042
     Dates: start: 20030212, end: 20030613
  2. VELCADE [Suspect]
  3. VELCADE [Suspect]
  4. THALIDOMIDE [Suspect]
     Indication: MULTIPLE MYELOMA
     Dosage: 200 MG, ORAL
     Route: 048
     Dates: start: 20030304
  5. DEXAMETHASONE TAB [Concomitant]
     Indication: MULTIPLE MYELOMA
     Dosage: 20 MG, ORAL
     Dates: start: 20030415
  6. XANAX [Concomitant]
  7. LACTULOSE [Concomitant]
  8. SONATA [Concomitant]
  9. EFFEXOR [Concomitant]
  10. PROZAC [Concomitant]
  11. DETROL [Concomitant]
  12. PREMARIN [Concomitant]
  13. NORVASC [Concomitant]
  14. FAMVIR [Concomitant]
  15. POTASSIUM CHLORIDE [Concomitant]
  16. NEUTRAPHOS [Concomitant]
  17. COUMADIN [Concomitant]
  18. ZYPREXA [Concomitant]
  19. CENTRUM (VITAMINS NOS, MINERALS NOS) [Concomitant]
  20. CALTRATE + D (COLECALCIFEROL, CALCIUM CARBONATE) [Suspect]
  21. IRON (IRON) [Concomitant]

REACTIONS (12)
  - BACK PAIN [None]
  - DEPRESSION [None]
  - DISEASE PROGRESSION [None]
  - DISEASE RECURRENCE [None]
  - FATIGUE [None]
  - GLOSSODYNIA [None]
  - HYPOAESTHESIA [None]
  - NEUTROPENIA [None]
  - NO THERAPEUTIC RESPONSE [None]
  - PAIN IN EXTREMITY [None]
  - PARAESTHESIA [None]
  - STEM CELL TRANSPLANT [None]
